FAERS Safety Report 10412967 (Version 3)
Quarter: 2014Q3

REPORT INFORMATION
  Report Type: Spontaneous
  Country: JP (occurrence: JP)
  Receive Date: 20140827
  Receipt Date: 20140910
  Transmission Date: 20150326
  Serious: Yes (Other)
  Sender: FDA-Public Use
  Company Number: PHHY2013JP114664

PATIENT
  Age: 9 Year
  Sex: Male
  Weight: 46 kg

DRUGS (10)
  1. VFEND [Concomitant]
     Active Substance: VORICONAZOLE
     Indication: OSTEOPOROSIS
     Dosage: 300 MG, UNK
     Route: 048
     Dates: start: 20100507, end: 20100521
  2. LEUCOVORIN [Concomitant]
     Active Substance: LEUCOVORIN
  3. METHOTREXATE [Interacting]
     Active Substance: METHOTREXATE
     Dosage: 4050 MG, DAILY
     Route: 041
     Dates: start: 20100512
  4. GASTER [Concomitant]
     Active Substance: FAMOTIDINE
     Indication: GASTROENTERITIS
     Dosage: 20 MG, UNK
     Route: 048
     Dates: start: 20100216, end: 20100528
  5. EXJADE [Suspect]
     Active Substance: DEFERASIROX
     Indication: ACUTE BIPHENOTYPIC LEUKAEMIA
     Dosage: 1000 MG, DAILY
     Route: 048
     Dates: start: 20100507, end: 20100511
  6. METHOTREXATE [Interacting]
     Active Substance: METHOTREXATE
     Dosage: 4050 MG, UNK
     Route: 041
     Dates: start: 20100507, end: 20100511
  7. ALFAROL [Concomitant]
     Active Substance: ALFACALCIDOL
     Indication: OSTEOPOROSIS
     Dosage: 0.5 UG, UNK
     Route: 048
     Dates: start: 20100202, end: 201008
  8. METHOTREXATE [Interacting]
     Active Substance: METHOTREXATE
     Indication: PROPHYLAXIS
     Dosage: 3 G, 3 COURSES OF WEEKLY 24 HRS
  9. METHOTREXATE [Interacting]
     Active Substance: METHOTREXATE
     Indication: ACUTE BIPHENOTYPIC LEUKAEMIA
     Dosage: 12.5 MG, DAILY
     Dates: start: 20100510, end: 20100510
  10. SAXIZON [Concomitant]
     Active Substance: HYDROCORTISONE SODIUM SUCCINATE
     Indication: ACUTE BIPHENOTYPIC LEUKAEMIA
     Dosage: 25 MG, UNK
     Dates: start: 20100510, end: 20100510

REACTIONS (2)
  - Drug interaction [Recovered/Resolved]
  - Drug level increased [Recovered/Resolved]

NARRATIVE: CASE EVENT DATE: 20100512
